FAERS Safety Report 9311071 (Version 1)
Quarter: 2013Q2

REPORT INFORMATION
  Report Type: Spontaneous
  Country: US (occurrence: None)
  Receive Date: 20130523
  Receipt Date: 20130523
  Transmission Date: 20140414
  Serious: Yes (Other)
  Sender: FDA-Public Use
  Company Number: None

PATIENT
  Age: 50 Year
  Sex: Male

DRUGS (2)
  1. LEVOFLOXACIN [Suspect]
     Indication: OROPHARYNGEAL PAIN
     Dosage: EACH DAY
     Route: 048
     Dates: start: 20130204, end: 20130208
  2. LEVOFLOXACIN [Suspect]
     Indication: SINUSITIS
     Dosage: EACH DAY
     Route: 048
     Dates: start: 20130219, end: 20130225

REACTIONS (9)
  - Back pain [None]
  - Urine abnormality [None]
  - Haematuria [None]
  - Proteinuria [None]
  - Tendon pain [None]
  - Parkinson^s disease [None]
  - Blood creatinine increased [None]
  - Arthralgia [None]
  - Myalgia [None]
